FAERS Safety Report 9402554 (Version 1)
Quarter: 2013Q3

REPORT INFORMATION
  Report Type: Report from Study
  Country: US (occurrence: US)
  Receive Date: 20130716
  Receipt Date: 20130716
  Transmission Date: 20140515
  Serious: Yes (Other)
  Sender: FDA-Public Use
  Company Number: US-ROCHE-1240221

PATIENT
  Sex: Male
  Weight: 138.47 kg

DRUGS (12)
  1. XOLAIR [Suspect]
     Indication: ASTHMA
     Route: 058
     Dates: start: 2007, end: 2009
  2. FORADIL [Concomitant]
     Indication: ASTHMA
     Route: 065
  3. AMLODIPINE BESYLATE [Concomitant]
     Indication: BLOOD PRESSURE
     Route: 048
  4. BENICAR [Concomitant]
     Indication: BLOOD PRESSURE
     Route: 048
  5. ATORVASTATIN [Concomitant]
     Route: 048
  6. ASPIRIN [Concomitant]
     Indication: BLOOD PRESSURE
     Route: 048
  7. PRISTIQ [Concomitant]
     Indication: DEPRESSION
     Route: 048
  8. SEROQUEL [Concomitant]
     Route: 048
  9. CLONAZEPAM [Concomitant]
     Route: 065
  10. HYDROXIZINE CHLORIDE [Concomitant]
     Dosage: AT BED TIME
     Route: 065
  11. ZOLPIDEM [Concomitant]
     Route: 065
  12. PROVENTIL INHALER [Concomitant]
     Dosage: 1 PUF 3 TIMES DAY
     Route: 065

REACTIONS (3)
  - White blood cell count increased [Unknown]
  - Meniscus injury [Unknown]
  - Wrong patient received medication [Unknown]
